FAERS Safety Report 9263938 (Version 1)
Quarter: 2013Q2

REPORT INFORMATION
  Report Type: Spontaneous
  Country: BE (occurrence: BE)
  Receive Date: 20130430
  Receipt Date: 20130430
  Transmission Date: 20140414
  Serious: Yes (Other)
  Sender: FDA-Public Use
  Company Number: BE-GLAXOSMITHKLINE-B0878165A

PATIENT
  Age: 43 Year
  Sex: Female
  Weight: 63 kg

DRUGS (1)
  1. LAMICTAL [Suspect]
     Indication: PRODUCT USED FOR UNKNOWN INDICATION
     Dosage: 50MG THREE TIMES PER DAY
     Route: 065
     Dates: start: 20120207, end: 20130414

REACTIONS (2)
  - Skin odour abnormal [Recovering/Resolving]
  - Urine odour abnormal [Unknown]
